FAERS Safety Report 22088581 (Version 3)
Quarter: 2023Q2

REPORT INFORMATION
  Report Type: Report from Study
  Country: CO (occurrence: CO)
  Receive Date: 20230313
  Receipt Date: 20230403
  Transmission Date: 20230722
  Serious: Yes (Other)
  Sender: FDA-Public Use
  Company Number: CO-BAYER-2023A030886

PATIENT
  Age: 27 Year
  Sex: Female

DRUGS (1)
  1. EYLEA [Suspect]
     Active Substance: AFLIBERCEPT
     Indication: Age-related macular degeneration
     Dosage: 2 MG; SOLUTION FOR INJECTION, 40 MG/ML
     Dates: start: 20200727

REACTIONS (3)
  - Glaucoma [Unknown]
  - Blindness unilateral [Unknown]
  - Eye pain [Unknown]

NARRATIVE: CASE EVENT DATE: 20230301
